FAERS Safety Report 9553157 (Version 1)
Quarter: 2013Q3

REPORT INFORMATION
  Report Type: Spontaneous
  Country: US (occurrence: None)
  Receive Date: 20130724
  Receipt Date: 20130724
  Transmission Date: 20140515
  Serious: Yes (Hospitalization)
  Sender: FDA-Public Use
  Company Number: PHEH2013US008096

PATIENT
  Age: 82 Year
  Sex: Male
  Weight: 95.2 kg

DRUGS (8)
  1. GLEEVEC (IMATINIB) UNKNOWN [Suspect]
     Indication: GASTROINTESTINAL CARCINOMA
     Route: 048
     Dates: start: 20100112
  2. ZANTAC (RANITIDINE HYDROCHLORIDE) [Concomitant]
  3. ADVAIR (FLUTICASONE PROPIONATE, SALMETEROL XINAFOATE) [Concomitant]
  4. COMBIVENT (IPRATROPIUM BROMIDE, SALBUTAMOL SULFATE) [Concomitant]
  5. ATENOLOL (ATENOLOL) [Concomitant]
  6. MOTRIN (IBUPROFEN) [Concomitant]
  7. LASIX (FUROSEMIDE) [Concomitant]
  8. SINGULAIR [Concomitant]

REACTIONS (1)
  - Localised intraabdominal fluid collection [None]
